FAERS Safety Report 7598020-1 (Version None)
Quarter: 2011Q3

REPORT INFORMATION
  Report Type: 
  Country: None (occurrence: None)
  Receive Date: 20110708
  Receipt Date: 20110629
  Transmission Date: 20111222
  Serious: Yes (Hospitalization, Other)
  Sender: FDA-Public Use
  Company Number: US-ABBOTT-11P-163-0835579-00

PATIENT
  Sex: Male
  Weight: 103.97 kg

DRUGS (3)
  1. ANDROGEL [Suspect]
     Dosage: 3 PUMPS PER DAY
  2. ANDROGEL [Suspect]
     Dosage: 2 PUMPS PER DAY
     Dates: start: 20110627
  3. ANDROGEL [Suspect]
     Indication: BLOOD TESTOSTERONE DECREASED
     Dates: start: 20010101

REACTIONS (9)
  - PERSONALITY CHANGE [None]
  - CEREBROSPINAL FLUID RHINORRHOEA [None]
  - INTRACRANIAL HYPOTENSION [None]
  - PITUITARY TUMOUR [None]
  - LETHARGY [None]
  - WEIGHT DECREASED [None]
  - MUSCLE DISORDER [None]
  - ABNORMAL BEHAVIOUR [None]
  - FEELING ABNORMAL [None]
